FAERS Safety Report 7993434-X (Version None)
Quarter: 2011Q4

REPORT INFORMATION
  Report Type: 
  Country: None (occurrence: None)
  Receive Date: 20111219
  Receipt Date: 20110321
  Transmission Date: 20120403
  Serious: No
  Sender: FDA-Public Use
  Company Number: US-ASTRAZENECA-2011SE09488

PATIENT
  Age: 76 Year
  Sex: Male
  Weight: 79.4 kg

DRUGS (4)
  1. CRESTOR [Suspect]
     Indication: LIPIDS ABNORMAL
     Route: 048
     Dates: start: 20090101
  2. VITAMIN TAB [Concomitant]
  3. NORVASC [Concomitant]
     Indication: HYPERTENSION
  4. CALCIUM [Concomitant]

REACTIONS (2)
  - BLOOD GLUCOSE INCREASED [None]
  - HAIR COLOUR CHANGES [None]
